FAERS Safety Report 9664656 (Version 1)
Quarter: 2013Q4

REPORT INFORMATION
  Report Type: Report from Study
  Country: US (occurrence: US)
  Receive Date: 20131101
  Receipt Date: 20131101
  Transmission Date: 20140711
  Serious: Yes (Other)
  Sender: FDA-Public Use
  Company Number: US-ABBVIE-13P-163-1161792-00

PATIENT
  Sex: Female
  Weight: 81.72 kg

DRUGS (8)
  1. HUMIRA [Suspect]
     Indication: ANKYLOSING SPONDYLITIS
  2. ACTEMRA [Suspect]
     Indication: ANKYLOSING SPONDYLITIS
     Dates: start: 2012, end: 201306
  3. UNNAMED MEDICATION [Concomitant]
     Indication: ANKYLOSING SPONDYLITIS
     Route: 050
  4. HYDROCHLOROTHIAZIDE [Concomitant]
     Indication: HYPERTENSION
  5. GLUCOSAMINE + CHONDROITIN [Concomitant]
     Indication: ANKYLOSING SPONDYLITIS
  6. PREDNISONE [Concomitant]
     Indication: ANKYLOSING SPONDYLITIS
  7. VITAMINS [Concomitant]
     Indication: VITAMIN SUPPLEMENTATION
  8. CALCIUM [Concomitant]
     Indication: MINERAL SUPPLEMENTATION

REACTIONS (6)
  - Thyroid neoplasm [Not Recovered/Not Resolved]
  - Ovarian cyst [Recovered/Resolved]
  - Malignant melanoma [Recovered/Resolved]
  - Ankylosing spondylitis [Not Recovered/Not Resolved]
  - Ephelides [Not Recovered/Not Resolved]
  - Blood cholesterol increased [Unknown]
